FAERS Safety Report 17935181 (Version 1)
Quarter: 2020Q2

REPORT INFORMATION
  Report Type: Spontaneous
  Country: US (occurrence: US)
  Receive Date: 20200624
  Receipt Date: 20200624
  Transmission Date: 20200714
  Serious: Yes (Other)
  Sender: FDA-Public Use
  Company Number: None

PATIENT
  Age: 65 Year
  Sex: Female
  Weight: 74.25 kg

DRUGS (7)
  1. TYMLOS [Suspect]
     Active Substance: ABALOPARATIDE
     Indication: OSTEOPOROSIS
     Route: 058
     Dates: start: 20191101, end: 20200609
  2. GABAPENTIN 300MG CAPSULES [Concomitant]
     Active Substance: GABAPENTIN
  3. METAXALONE 800MG TABLETS [Concomitant]
  4. CYCLOBENZAPRINE 10MG TABLETS [Concomitant]
     Active Substance: CYCLOBENZAPRINE HYDROCHLORIDE
  5. SERTRALINE 50MG TABLETS [Concomitant]
     Active Substance: SERTRALINE HYDROCHLORIDE
  6. VERAPAMIL 80MG TABLETS [Concomitant]
  7. DICLOFENAC 1% GEL [Concomitant]
     Active Substance: DICLOFENAC

REACTIONS (4)
  - Pulmonary mass [None]
  - Cough [None]
  - Wheezing [None]
  - Productive cough [None]

NARRATIVE: CASE EVENT DATE: 20200201
